FAERS Safety Report 8246717-2 (Version None)
Quarter: 2012Q1

REPORT INFORMATION
  Report Type: 
  Country: None (occurrence: None)
  Receive Date: 20120316
  Receipt Date: 20090428
  Transmission Date: 20120608
  Serious: Yes (Other)
  Sender: FDA-Public Use
  Company Number: PHEH2009US04141

PATIENT
  Sex: Female

DRUGS (2)
  1. TEKTURNA [Suspect]
     Indication: HYPERTENSION
     Dosage: 150  MG, DAILY, ORAL
     Route: 048
     Dates: start: 20090401, end: 20090401
  2. EXFORGE [Concomitant]

REACTIONS (1)
  - HYPOTENSION [None]
